FAERS Safety Report 5056158-7 (Version None)
Quarter: 2006Q3

REPORT INFORMATION
  Report Type: 
  Country: None (occurrence: None)
  Receive Date: 20060720
  Receipt Date: 20060714
  Transmission Date: 20061208
  Serious: Yes (Life-Threatening)
  Sender: FDA-Public Use
  Company Number: JP-JPN-A200602643

PATIENT
  Age: 57 Year
  Sex: Female
  Weight: 53 kg

DRUGS (11)
  1. PAXIL [Suspect]
     Indication: DEPRESSION
     Dosage: 10MG TWICE PER DAY
     Route: 048
     Dates: start: 20060625, end: 20060630
  2. BLOPRESS [Concomitant]
     Indication: ATRIAL FIBRILLATION
     Dosage: 8MG PER DAY
     Route: 048
  3. WARFARIN SODIUM [Concomitant]
     Indication: ATRIAL FIBRILLATION
     Dosage: 3.5U PER DAY
     Route: 048
     Dates: start: 20060609
  4. SERENACE [Concomitant]
     Route: 048
     Dates: start: 20060609, end: 20060621
  5. ARTANE [Concomitant]
     Indication: PARKINSONISM
     Dosage: 1U TWICE PER DAY
     Route: 048
     Dates: start: 20060609
  6. ROHYPNOL [Concomitant]
     Indication: INSOMNIA
     Dosage: 1U PER DAY
     Route: 048
     Dates: start: 20060609
  7. MAGMITT [Concomitant]
     Indication: INSOMNIA
     Dosage: 3U PER DAY
     Route: 048
     Dates: start: 20060609
  8. LAXOBERON [Concomitant]
     Indication: INSOMNIA
     Route: 048
     Dates: start: 20060609
  9. LEVOTOMIN [Concomitant]
     Indication: INSOMNIA
     Dosage: 1U PER DAY
     Route: 048
     Dates: start: 20060609
  10. DIGOXIN [Concomitant]
     Indication: ATRIAL FIBRILLATION
     Dosage: 2U PER DAY
     Route: 048
     Dates: start: 20060623, end: 20060630
  11. RISPERDAL [Concomitant]
     Dosage: 2U PER DAY
     Route: 048
     Dates: start: 20060621

REACTIONS (2)
  - PROTHROMBIN TIME PROLONGED [None]
  - URINARY RETENTION [None]
